FAERS Safety Report 16481823 (Version 1)
Quarter: 2019Q2

REPORT INFORMATION
  Report Type: Spontaneous
  Country: KR (occurrence: KR)
  Receive Date: 20190627
  Receipt Date: 20190627
  Transmission Date: 20190711
  Serious: Yes (Death, Hospitalization)
  Sender: FDA-Public Use
  Company Number: KR-CELLTRION INC.-2019KR022373

PATIENT

DRUGS (2)
  1. TRUXIMA [Suspect]
     Active Substance: RITUXIMAB-ABBS
     Indication: PEMPHIGUS
     Dosage: 1000 MG, TWICE TIME AT 2 WEEKS INTERVAL
     Route: 065
  2. CORTICOSTEROID NOS [Suspect]
     Active Substance: CORTICOSTEROID NOS
     Indication: PEMPHIGUS
     Dosage: SYSTEMIC, HIGH DOSE

REACTIONS (3)
  - Off label use [Unknown]
  - Acute hepatic failure [Fatal]
  - Hepatitis B reactivation [Fatal]
